FAERS Safety Report 7601313-2 (Version None)
Quarter: 2011Q3

REPORT INFORMATION
  Report Type: 
  Country: None (occurrence: None)
  Receive Date: 20110711
  Receipt Date: 20110705
  Transmission Date: 20111222
  Serious: Yes (Other)
  Sender: FDA-Public Use
  Company Number: FR-JNJFOC-20110701793

PATIENT
  Age: 64 Year
  Sex: Male

DRUGS (6)
  1. ATENOLOL [Concomitant]
     Route: 065
  2. METFORMIN HCL [Concomitant]
     Route: 065
  3. ALL OTHER THERAPEUTIC PRODUCTS [Concomitant]
     Route: 065
  4. ROCEPHIN [Concomitant]
     Route: 065
     Dates: start: 20110612
  5. DIAMICRON [Concomitant]
     Route: 065
  6. LEVOFLOXACIN [Suspect]
     Indication: LUNG DISORDER
     Route: 065
     Dates: start: 20110612

REACTIONS (2)
  - ANURIA [None]
  - RENAL FAILURE ACUTE [None]
